FAERS Safety Report 7810840-4 (Version None)
Quarter: 2011Q4

REPORT INFORMATION
  Report Type: 
  Country: None (occurrence: None)
  Receive Date: 20111012
  Receipt Date: 20111012
  Transmission Date: 20120403
  Serious: Yes (Hospitalization)
  Sender: FDA-Public Use
  Company Number: None

PATIENT
  Age: 71 Year
  Sex: Male
  Weight: 78 kg

DRUGS (1)
  1. ATIVAN [Suspect]
     Indication: ANXIETY
     Dosage: 2 MG IV X 1
     Route: 042

REACTIONS (3)
  - DISORIENTATION [None]
  - MENTAL STATUS CHANGES [None]
  - HALLUCINATION, VISUAL [None]
